FAERS Safety Report 24354863 (Version 1)
Quarter: 2024Q3

REPORT INFORMATION
  Report Type: Report from Study
  Country: US (occurrence: US)
  Receive Date: 20240923
  Receipt Date: 20240923
  Transmission Date: 20241016
  Serious: Yes (Hospitalization, Other)
  Sender: BRISTOL MYERS SQUIBB
  Company Number: US-BRISTOL-MYERS SQUIBB COMPANY-2024-019831

PATIENT
  Age: 72 Year
  Sex: Male
  Weight: 76.5 kg

DRUGS (1)
  1. ABECMA [Suspect]
     Active Substance: IDECABTAGENE VICLEUCEL
     Indication: Plasma cell myeloma refractory
     Route: 042
     Dates: start: 20240120, end: 20240120

REACTIONS (12)
  - Balance disorder [Unknown]
  - Decreased appetite [Unknown]
  - Malaise [Not Recovered/Not Resolved]
  - Ascites [Unknown]
  - Diarrhoea [Unknown]
  - Wound [Not Recovered/Not Resolved]
  - Viral infection [Unknown]
  - Feeding disorder [Unknown]
  - Full blood count decreased [Unknown]
  - Fall [Unknown]
  - Cytokine release syndrome [Recovered/Resolved]
  - Immune effector cell-associated neurotoxicity syndrome [Unknown]

NARRATIVE: CASE EVENT DATE: 20240120
